FAERS Safety Report 5582977-4 (Version None)
Quarter: 2008Q1

REPORT INFORMATION
  Report Type: 
  Country: None (occurrence: None)
  Receive Date: 20080107
  Receipt Date: 20071231
  Transmission Date: 20080703
  Serious: Yes (Death)
  Sender: FDA-Public Use
  Company Number: US-MERCK-0712USA09340

PATIENT
  Age: 59 Year
  Sex: Male

DRUGS (5)
  1. PRINIVIL [Suspect]
     Route: 048
  2. CODEINE [Suspect]
     Route: 048
  3. NITROGLYCERIN [Suspect]
     Route: 048
  4. COUGH, COLD, AND FLU THERAPIES (UNSPECIFIED) [Suspect]
     Route: 048
  5. CALCIUM (UNSPECIFIED) [Suspect]
     Route: 048

REACTIONS (2)
  - COMPLETED SUICIDE [None]
  - OVERDOSE [None]
